FAERS Safety Report 7447163-1 (Version None)
Quarter: 2011Q2

REPORT INFORMATION
  Report Type: 
  Country: None (occurrence: None)
  Receive Date: 20110429
  Receipt Date: 20101129
  Transmission Date: 20111010
  Serious: No
  Sender: FDA-Public Use
  Company Number: US-ASTRAZENECA-2010SE56660

PATIENT
  Age: 280 Month
  Sex: Female
  Weight: 68 kg

DRUGS (3)
  1. TUMS [Concomitant]
  2. PEPCID [Concomitant]
  3. NEXIUM [Suspect]
     Indication: GASTRIC ULCER
     Route: 048
     Dates: start: 20100601, end: 20101124

REACTIONS (1)
  - PIGMENTATION DISORDER [None]
